FAERS Safety Report 7032300-3 (Version None)
Quarter: 2010Q4

REPORT INFORMATION
  Report Type: 
  Country: None (occurrence: None)
  Receive Date: 20101007
  Receipt Date: 20100928
  Transmission Date: 20110411
  Serious: Yes (Other)
  Sender: FDA-Public Use
  Company Number: CA-ASTRAZENECA-2010SE46035

PATIENT
  Age: 41 Year
  Sex: Female
  Weight: 57.4 kg

DRUGS (4)
  1. NOLVADEX [Suspect]
     Indication: BREAST CANCER
     Route: 048
     Dates: start: 20100331
  2. EFFEXOR [Concomitant]
     Dates: start: 20100601
  3. TYLENOL [Concomitant]
     Dosage: 1-2 TABLETS A 4-6 HOURS AS NEEDED
     Route: 048
  4. TRASTUZUMAB [Concomitant]
     Dosage: ONCE EVERY THREE WEEKS
     Route: 042
     Dates: end: 20100923

REACTIONS (3)
  - BLISTER [None]
  - RASH [None]
  - RASH MACULAR [None]
